FAERS Safety Report 7793157-6 (Version None)
Quarter: 2011Q4

REPORT INFORMATION
  Report Type: 
  Country: None (occurrence: None)
  Receive Date: 20111003
  Receipt Date: 20110929
  Transmission Date: 20120403
  Serious: Yes (Hospitalization, Other)
  Sender: FDA-Public Use
  Company Number: US-PFIZER INC-2011194140

PATIENT
  Sex: Female
  Weight: 104 kg

DRUGS (3)
  1. CHANTIX [Suspect]
     Indication: SMOKING CESSATION THERAPY
     Dosage: 0.5 MG, 1X/DAY
     Route: 048
  2. SERTRALINE HYDROCHLORIDE [Suspect]
     Indication: BIPOLAR DISORDER
     Dosage: TWO TABLETS OF 100 MG, DAILY AT BED TIM
  3. PAXIL [Concomitant]
     Indication: BIPOLAR DISORDER
     Dosage: UNK

REACTIONS (5)
  - CHRONIC OBSTRUCTIVE PULMONARY DISEASE [None]
  - EMPHYSEMA [None]
  - MOOD SWINGS [None]
  - ASTHMA [None]
  - PSYCHOMOTOR HYPERACTIVITY [None]
